FAERS Safety Report 8254516 (Version 3)
Quarter: 2012Q4

REPORT INFORMATION
  Report Type: Report from Study
  Country: US (occurrence: US)
  Receive Date: 20111118
  Receipt Date: 20121111
  Transmission Date: 20130627
  Serious: Yes (Hospitalization)
  Sender: FDA-Public Use
  Company Number: US-BRISTOL-MYERS SQUIBB COMPANY-16225583

PATIENT
  Age: 64 Year
  Sex: Male
  Weight: 98 kg

DRUGS (11)
  1. PACLITAXEL [Suspect]
     Indication: LUNG NEOPLASM MALIGNANT
     Dosage: Also 463mg
     Route: 042
     Dates: start: 20111024
  2. CARBOPLATIN [Suspect]
     Indication: LUNG NEOPLASM MALIGNANT
     Route: 042
     Dates: start: 20111024
  3. ETOPOSIDE [Suspect]
     Indication: LUNG NEOPLASM MALIGNANT
     Route: 042
     Dates: start: 20110808, end: 20110913
  4. CISPLATIN [Suspect]
     Indication: LUNG NEOPLASM MALIGNANT
     Route: 042
     Dates: start: 20110808, end: 20110913
  5. LOVENOX [Concomitant]
     Indication: DEEP VEIN THROMBOSIS
     Dates: start: 20111005
  6. BACTROBAN [Concomitant]
     Indication: PROPHYLAXIS
     Dates: start: 20110906
  7. COMPAZINE [Concomitant]
     Indication: NAUSEA
     Dates: start: 20110801
  8. SYMBICORT [Concomitant]
     Indication: COUGH
     Dates: start: 20110719
  9. SPIRIVA [Concomitant]
     Indication: COUGH
     Dosage: Inhaler
     Dates: start: 20110719
  10. POTASSIUM CHLORIDE [Concomitant]
     Indication: PROPHYLAXIS
     Dates: start: 20110927
  11. MAGNESIUM OXIDE [Concomitant]
     Indication: PROPHYLAXIS
     Dates: start: 20110927

REACTIONS (1)
  - Syncope [Recovered/Resolved]
